FAERS Safety Report 5699709-1 (Version None)
Quarter: 2008Q2

REPORT INFORMATION
  Report Type: 
  Country: None (occurrence: None)
  Receive Date: 20080410
  Receipt Date: 20080402
  Transmission Date: 20081010
  Serious: Yes (Other)
  Sender: FDA-Public Use
  Company Number: PHBS2007BR14273

PATIENT
  Age: 25 Year
  Sex: Female

DRUGS (2)
  1. TEGRETOL [Suspect]
     Indication: EPILEPSY
     Dosage: 200 MG, QD
     Route: 048
     Dates: start: 20070724
  2. PENICILLIN [Suspect]

REACTIONS (16)
  - ATAXIA [None]
  - DAYDREAMING [None]
  - DIZZINESS [None]
  - DRY MOUTH [None]
  - ERYTHEMA [None]
  - FATIGUE [None]
  - MEMORY IMPAIRMENT [None]
  - MYALGIA [None]
  - POISONING [None]
  - PRESYNCOPE [None]
  - PYREXIA [None]
  - RASH ERYTHEMATOUS [None]
  - SPEECH DISORDER [None]
  - THROAT IRRITATION [None]
  - VIRAL INFECTION [None]
  - VISUAL DISTURBANCE [None]
